FAERS Safety Report 10436602 (Version 1)
Quarter: 2014Q3

REPORT INFORMATION
  Report Type: Spontaneous
  Country: US (occurrence: US)
  Receive Date: 20140908
  Receipt Date: 20140908
  Transmission Date: 20150326
  Serious: No
  Sender: FDA-Public Use
  Company Number: US-ASTRAZENECA-2014SE65090

PATIENT
  Age: 87 Year
  Sex: Female

DRUGS (1)
  1. ENTOCORT EC [Suspect]
     Active Substance: BUDESONIDE
     Indication: COLITIS
     Route: 048

REACTIONS (4)
  - Intentional product misuse [Unknown]
  - Diarrhoea [Unknown]
  - Cachexia [Unknown]
  - Off label use [Unknown]
